FAERS Safety Report 9374384 (Version 2)
Quarter: 2014Q1

REPORT INFORMATION
  Report Type: Report from Study
  Country: AR (occurrence: AR)
  Receive Date: 20130628
  Receipt Date: 20140310
  Transmission Date: 20141002
  Serious: Yes (Other)
  Sender: FDA-Public Use
  Company Number: PHHY2012AR120832

PATIENT
  Age: 66 Year
  Sex: Female

DRUGS (1)
  1. GLIVEC [Suspect]
     Indication: CHRONIC MYELOID LEUKAEMIA
     Dosage: 200 MG, DAILY
     Route: 048
     Dates: start: 201109

REACTIONS (6)
  - Liver disorder [Recovering/Resolving]
  - Anaemia [Recovering/Resolving]
  - Platelet count increased [Recovering/Resolving]
  - Blood triglycerides increased [Recovering/Resolving]
  - White blood cell count increased [Recovering/Resolving]
  - Fatigue [Recovering/Resolving]
